FAERS Safety Report 15785112 (Version 4)
Quarter: 2021Q3

REPORT INFORMATION
  Report Type: Spontaneous
  Country: US (occurrence: US)
  Receive Date: 20190103
  Receipt Date: 20210805
  Transmission Date: 20211014
  Serious: No
  Sender: FDA-Public Use
  Company Number: US-PFIZER INC-2019001297

PATIENT
  Age: 61 Year
  Sex: Female

DRUGS (4)
  1. RINVOQ [Suspect]
     Active Substance: UPADACITINIB
     Dosage: UNK
  2. XELJANZ XR [Suspect]
     Active Substance: TOFACITINIB CITRATE
     Indication: RHEUMATOID ARTHRITIS
     Dosage: 11 MG, ALTERNATE DAY (EVERY OTHER DAY)
     Dates: start: 2018
  3. METHOTREXATE. [Concomitant]
     Active Substance: METHOTREXATE
     Dosage: UNK
     Dates: start: 2012
  4. XELJANZ XR [Suspect]
     Active Substance: TOFACITINIB CITRATE
     Dosage: 10 MG, 2X/DAY
     Dates: start: 201812

REACTIONS (9)
  - Urinary tract infection [Unknown]
  - Musculoskeletal stiffness [Recovered/Resolved]
  - Intentional product misuse [Unknown]
  - Product dose omission issue [Unknown]
  - Gait inability [Unknown]
  - Urticaria [Unknown]
  - Sensitivity to weather change [Unknown]
  - Muscle spasms [Not Recovered/Not Resolved]
  - Dermatitis allergic [Unknown]

NARRATIVE: CASE EVENT DATE: 2018
